FAERS Safety Report 5024095-X (Version None)
Quarter: 2006Q2

REPORT INFORMATION
  Report Type: 
  Country: None (occurrence: None)
  Receive Date: 20060607
  Receipt Date: 20060525
  Transmission Date: 20061013
  Serious: Yes (Other)
  Sender: FDA-Public Use
  Company Number: 2006066200

PATIENT
  Sex: Female

DRUGS (1)
  1. DEPO-PROVERA [Suspect]
     Indication: CONTRACEPTION
     Dosage: ONLY THREE SHOTS WERE ADMINISTERED, INTRAMUSCULAR
     Route: 030

REACTIONS (3)
  - AMENORRHOEA [None]
  - INFECTION [None]
  - SALPINGECTOMY [None]
